FAERS Safety Report 17800868 (Version 1)
Quarter: 2020Q2

REPORT INFORMATION
  Report Type: Spontaneous
  Country: DK (occurrence: DK)
  Receive Date: 20200518
  Receipt Date: 20200518
  Transmission Date: 20200714
  Serious: Yes (Hospitalization, Other)
  Sender: FDA-Public Use
  Company Number: DK-AMGEN-DNKSP2020078610

PATIENT
  Age: 48 Year
  Sex: Female

DRUGS (3)
  1. ENBREL [Suspect]
     Active Substance: ETANERCEPT
     Indication: RHEUMATOID ARTHRITIS
     Dosage: UNK
     Route: 065
     Dates: end: 20160810
  2. ENBREL [Suspect]
     Active Substance: ETANERCEPT
     Dosage: UNK
     Route: 065
     Dates: start: 20160822, end: 20160914
  3. BENEPALI [Suspect]
     Active Substance: ETANERCEPT
     Indication: RHEUMATOID ARTHRITIS
     Dosage: UNK
     Route: 065
     Dates: start: 20160811, end: 20160822

REACTIONS (17)
  - Dizziness [Unknown]
  - Fatigue [Unknown]
  - Limb discomfort [Unknown]
  - Asthenia [Unknown]
  - Discomfort [Unknown]
  - Balance disorder [Unknown]
  - Cognitive disorder [Unknown]
  - Tremor [Unknown]
  - Disturbance in attention [Unknown]
  - Muscle spasms [Unknown]
  - Visual impairment [Unknown]
  - Speech disorder [Unknown]
  - Multiple sclerosis [Unknown]
  - Paralysis [Unknown]
  - Sensory disturbance [Unknown]
  - Pain [Unknown]
  - Gait disturbance [Unknown]

NARRATIVE: CASE EVENT DATE: 201608
